FAERS Safety Report 7038511-5 (Version None)
Quarter: 2010Q4

REPORT INFORMATION
  Report Type: 
  Country: None (occurrence: None)
  Receive Date: 20101011
  Receipt Date: 20100517
  Transmission Date: 20110411
  Serious: No
  Sender: FDA-Public Use
  Company Number: US-PFIZER INC-2010062310

PATIENT

DRUGS (1)
  1. GABAPENTIN [Suspect]

REACTIONS (1)
  - DRUG HYPERSENSITIVITY [None]
